FAERS Safety Report 9628941 (Version 2)
Quarter: 2013Q4

REPORT INFORMATION
  Report Type: Spontaneous
  Country: US (occurrence: US)
  Receive Date: 20131017
  Receipt Date: 20131017
  Transmission Date: 20140711
  Serious: No
  Sender: FDA-Public Use
  Company Number: US-BAYER-2013-125463

PATIENT
  Age: 64 Year
  Sex: Female
  Weight: 104 kg

DRUGS (5)
  1. ALEVE CAPLET [Suspect]
     Indication: ARTHRITIS
     Dosage: 1 DF, PRN
     Route: 048
     Dates: start: 2013, end: 20131013
  2. ALEVE CAPLET [Suspect]
     Indication: PAIN
  3. VALSARTAN [Concomitant]
  4. GERITOL [VITAMINS NOS] [Concomitant]
  5. ALPRAZOLAM [Concomitant]

REACTIONS (3)
  - Drug ineffective [None]
  - Fatigue [Recovered/Resolved]
  - Feeling abnormal [Recovered/Resolved]
